FAERS Safety Report 11836966 (Version 2)
Quarter: 2016Q1

REPORT INFORMATION
  Report Type: Spontaneous
  Country: BR (occurrence: BR)
  Receive Date: 20151215
  Receipt Date: 20160115
  Transmission Date: 20160525
  Serious: Yes (Other)
  Sender: FDA-Public Use
  Company Number: BR-VALIDUS PHARMACEUTICALS LLC-BR-2015VAL000806

PATIENT

DRUGS (4)
  1. ALPRAZOLAM. [Concomitant]
     Active Substance: ALPRAZOLAM
     Indication: PRODUCT USED FOR UNKNOWN INDICATION
     Dosage: UNK
     Dates: start: 1991
  2. LOPRESSOR [Suspect]
     Active Substance: METOPROLOL TARTRATE
     Indication: HYPERTENSION
     Dosage: 1 DF, BID (ONE IN THE MORNING AND ONE AT NIGHT)
     Route: 048
  3. VITAMIN B COMPLEX [Concomitant]
     Active Substance: CYANOCOBALAMIN\DEXPANTHENOL\NIACINAMIDE\PYRIDOXINE HYDROCHLORIDE\RIBOFLAVIN 5^-PHOSPHATE SODIUM\THIAMINE HYDROCHLORIDE\VITAMIN B COMPLEX
     Indication: PRODUCT USED FOR UNKNOWN INDICATION
     Dosage: UNK
     Dates: start: 1980
  4. SELOKEEN [Suspect]
     Active Substance: METOPROLOL
     Indication: HYPERTENSION
     Dosage: 1 DF, BID (ONE IN THE MORNING AND ONE AT NIGHT)
     Route: 048

REACTIONS (2)
  - Excessive cerumen production [Recovered/Resolved]
  - Deafness [Recovered/Resolved]

NARRATIVE: CASE EVENT DATE: 201508
